FAERS Safety Report 6058263-5 (Version None)
Quarter: 2009Q1

REPORT INFORMATION
  Report Type: 
  Country: None (occurrence: None)
  Receive Date: 20090127
  Receipt Date: 20090127
  Transmission Date: 20090719
  Serious: Yes (Other)
  Sender: FDA-Public Use
  Company Number: None

PATIENT
  Sex: Female
  Weight: 44.4525 kg

DRUGS (2)
  1. OFLOXACIN [Suspect]
     Indication: BLEPHARITIS
     Dosage: 1 EYEDROP 3 TIMES A DAY EYE
     Route: 047
     Dates: start: 20090114
  2. OFLOXACIN [Suspect]
     Indication: BLEPHARITIS
     Dosage: 1 EYEDROP 3 TIMES A DAY EYE
     Route: 047
     Dates: start: 20090115

REACTIONS (1)
  - PALPITATIONS [None]
